FAERS Safety Report 5776801-4 (Version None)
Quarter: 2008Q2

REPORT INFORMATION
  Report Type: 
  Country: None (occurrence: None)
  Receive Date: 20080618
  Receipt Date: 20080506
  Transmission Date: 20081010
  Serious: No
  Sender: FDA-Public Use
  Company Number: US-ASTRAZENECA-2008UW07136

PATIENT
  Age: 40 Year
  Sex: Male

DRUGS (3)
  1. SYMBICORT [Suspect]
     Indication: BRONCHITIS
     Dosage: 160/4.5
     Route: 055
  2. SYMBICORT [Suspect]
     Indication: WHEEZING
     Dosage: 160/4.5
     Route: 055
  3. SYMBICORT [Suspect]
     Indication: NASAL CONGESTION
     Dosage: 160/4.5
     Route: 055

REACTIONS (2)
  - COUGH [None]
  - HICCUPS [None]
